FAERS Safety Report 5258776-X (Version None)
Quarter: 2007Q1

REPORT INFORMATION
  Report Type: 
  Country: None (occurrence: None)
  Receive Date: 20061117
  Receipt Date: 20060109
  Transmission Date: 20070707
  Serious: Yes (Other)
  Sender: FDA-Public Use
  Company Number: US-JNJFOC-20060101994

PATIENT
  Age: 65 Year
  Sex: Male
  Weight: 88.4514 kg

DRUGS (1)
  1. LEVAQUIN [Suspect]
     Indication: LOWER RESPIRATORY TRACT INFECTION
     Dosage: 500 MG, 1 IN  1 DAY, ORAL
     Route: 048
     Dates: start: 20051204, end: 20051208

REACTIONS (5)
  - BLOOD BLISTER [None]
  - NEUROPATHY [None]
  - OEDEMA PERIPHERAL [None]
  - RASH MACULAR [None]
  - WEIGHT DECREASED [None]
